FAERS Safety Report 5653302-5 (Version None)
Quarter: 2008Q1

REPORT INFORMATION
  Report Type: 
  Country: None (occurrence: None)
  Receive Date: 20080131
  Receipt Date: 20071017
  Transmission Date: 20080703
  Serious: No
  Sender: FDA-Public Use
  Company Number: US200710004609

PATIENT
  Age: 59 Year
  Sex: Male

DRUGS (9)
  1. BYETTA [Suspect]
     Indication: TYPE 2 DIABETES MELLITUS
     Dosage: 5 UG, 2/D, SUBCUTANEOUS ; 10 UG, 2/D, SUBCUTANEOUS
     Route: 058
     Dates: start: 20070801, end: 20070901
  2. BYETTA [Suspect]
     Indication: TYPE 2 DIABETES MELLITUS
     Dosage: 5 UG, 2/D, SUBCUTANEOUS ; 10 UG, 2/D, SUBCUTANEOUS
     Route: 058
     Dates: start: 20070901
  3. METFORMIN HCL [Concomitant]
  4. ACTOS [Concomitant]
  5. METOPROLOL TARTRATE [Concomitant]
  6. FISH OIL (FISH OIL) [Concomitant]
  7. ZETIA [Concomitant]
  8. WELCHOL [Concomitant]
  9. ASPIRIN /USA/ (ACETYLSALICYLC ACID) [Concomitant]

REACTIONS (1)
  - BACK PAIN [None]
